FAERS Safety Report 6578511-2 (Version None)
Quarter: 2010Q1

REPORT INFORMATION
  Report Type: 
  Country: None (occurrence: None)
  Receive Date: 20100211
  Receipt Date: 20100204
  Transmission Date: 20100710
  Serious: Yes (Hospitalization)
  Sender: FDA-Public Use
  Company Number: PHHO2010FR02038

PATIENT
  Sex: Male

DRUGS (3)
  1. MYCOPHENOLIC ACID [Suspect]
     Indication: RENAL TRANSPLANT
     Dosage: 2160 PER DAY
     Route: 048
     Dates: start: 20100201
  2. NEORAL [Suspect]
     Indication: RENAL TRANSPLANT
     Dosage: 6 MG/KG DAILY
     Route: 048
     Dates: start: 20100201
  3. CORTANCYL [Suspect]
     Indication: RENAL TRANSPLANT
     Dosage: 1 MG/KG DAILY
     Route: 048
     Dates: start: 20100201

REACTIONS (1)
  - ARTERIAL DISORDER [None]
